FAERS Safety Report 16142947 (Version 2)
Quarter: 2019Q3

REPORT INFORMATION
  Report Type: Report from Study
  Country: US (occurrence: US)
  Receive Date: 20190401
  Receipt Date: 20190903
  Transmission Date: 20191004
  Serious: Yes (Other)
  Sender: FDA-Public Use
  Company Number: US-OTSUKA-2017_013734

PATIENT
  Age: 39 Year
  Sex: Male

DRUGS (16)
  1. NEURONTIN [Concomitant]
     Active Substance: GABAPENTIN
     Dosage: 100 MG, QD ,(QAMX1 WEEK)
     Route: 065
  2. ARIPIPRAZOLE (DUAL CHAMBER) [Suspect]
     Active Substance: ARIPIPRAZOLE
     Indication: BIPOLAR I DISORDER
     Dosage: 400 MG, QM (MONTHLY)
     Route: 065
     Dates: start: 201609
  3. ABILIFY [Suspect]
     Active Substance: ARIPIPRAZOLE
     Dosage: HALF UNTIL HIS DOSE ARRIVED
     Route: 065
  4. DEPAKOTE ER [Suspect]
     Active Substance: DIVALPROEX SODIUM
     Dosage: 100 MG, BID
     Route: 065
  5. NEURONTIN [Concomitant]
     Active Substance: GABAPENTIN
     Dosage: 400 MG, QD, (QPMX1 WEEK)
     Route: 065
  6. LIBRIUM [Suspect]
     Active Substance: CHLORDIAZEPOXIDE HYDROCHLORIDE
     Indication: ANXIETY
     Dosage: 25 MG, QD, QAM
     Route: 065
  7. NEURONTIN [Concomitant]
     Active Substance: GABAPENTIN
     Dosage: 200 MG, QD, (QPMX1 WEEK)
     Route: 065
  8. ABILIFY [Suspect]
     Active Substance: ARIPIPRAZOLE
     Dosage: 30 MG, QD (ABOUT A WEEK)
     Route: 048
  9. NEURONTIN [Concomitant]
     Active Substance: GABAPENTIN
     Indication: PRODUCT USED FOR UNKNOWN INDICATION
     Dosage: 200 MG, QD, (QAM X 1 WEEK)
     Route: 065
  10. ARIPIPRAZOLE (DUAL CHAMBER) [Suspect]
     Active Substance: ARIPIPRAZOLE
     Indication: BIPOLAR II DISORDER
  11. LIBRIUM [Suspect]
     Active Substance: CHLORDIAZEPOXIDE HYDROCHLORIDE
     Dosage: UNK
     Route: 065
  12. NEURONTIN [Concomitant]
     Active Substance: GABAPENTIN
     Dosage: UNK
     Route: 065
  13. ABILIFY [Suspect]
     Active Substance: ARIPIPRAZOLE
     Indication: PRODUCT USED FOR UNKNOWN INDICATION
     Dosage: UNK
     Route: 048
  14. DEPAKOTE ER [Suspect]
     Active Substance: DIVALPROEX SODIUM
     Indication: PRODUCT USED FOR UNKNOWN INDICATION
     Dosage: 1750 MG (750 MG IN MORNING AND 1000 MG IN EVENING)
     Route: 065
  15. LIBRIUM [Suspect]
     Active Substance: CHLORDIAZEPOXIDE HYDROCHLORIDE
     Dosage: 50 MG, QD, QPM
     Route: 065
  16. NEURONTIN [Concomitant]
     Active Substance: GABAPENTIN
     Dosage: 100 MG, QD, QPM
     Route: 065

REACTIONS (42)
  - Arthritis [Unknown]
  - Weight increased [Unknown]
  - Fatigue [Not Recovered/Not Resolved]
  - Transient ischaemic attack [Unknown]
  - Joint swelling [Unknown]
  - Hypoaesthesia [Unknown]
  - Nasopharyngitis [Unknown]
  - Hypertension [Unknown]
  - Tremor [Unknown]
  - Intentional product use issue [Unknown]
  - Depressed mood [Unknown]
  - Malaise [Unknown]
  - Product use in unapproved indication [Unknown]
  - Nasal septal operation [Recovering/Resolving]
  - Fluid retention [Unknown]
  - Breast mass [Unknown]
  - Oropharyngeal pain [Unknown]
  - Erythema [Unknown]
  - Sleep disorder [Unknown]
  - Type 2 diabetes mellitus [Unknown]
  - Imprisonment [Unknown]
  - Product dose omission [Unknown]
  - Peripheral swelling [Unknown]
  - Anger [Unknown]
  - Dizziness [Unknown]
  - Arthralgia [Not Recovered/Not Resolved]
  - Therapeutic response unexpected [Unknown]
  - Feeling abnormal [Unknown]
  - Apathy [Unknown]
  - Personal relationship issue [Unknown]
  - Suicidal ideation [Unknown]
  - Adverse event [Unknown]
  - Back pain [Not Recovered/Not Resolved]
  - Depression [Unknown]
  - Insomnia [Not Recovered/Not Resolved]
  - Lipoma [Not Recovered/Not Resolved]
  - Nerve compression [Unknown]
  - Negative thoughts [Unknown]
  - Hypersensitivity [Unknown]
  - Agitation [Not Recovered/Not Resolved]
  - Anxiety [Not Recovered/Not Resolved]
  - Myalgia [Unknown]

NARRATIVE: CASE EVENT DATE: 201609
